FAERS Safety Report 9006128 (Version 1)
Quarter: 2013Q1

REPORT INFORMATION
  Report Type: Spontaneous
  Country: US (occurrence: US)
  Receive Date: 20130109
  Receipt Date: 20130109
  Transmission Date: 20140127
  Serious: Yes (Other)
  Sender: FDA-Public Use
  Company Number: US-009507513-0907USA03715

PATIENT
  Age: 38 Year
  Sex: Female
  Weight: 78.93 kg

DRUGS (1)
  1. SINGULAIR [Suspect]
     Indication: ASTHMA
     Dosage: 1 DF, QD
     Route: 048
     Dates: start: 20081010, end: 20081025

REACTIONS (4)
  - Panic attack [Unknown]
  - Fear [Unknown]
  - Insomnia [Unknown]
  - Abnormal dreams [Unknown]
